FAERS Safety Report 5904819-7 (Version None)
Quarter: 2008Q4

REPORT INFORMATION
  Report Type: 
  Country: None (occurrence: None)
  Receive Date: 20081001
  Receipt Date: 20080924
  Transmission Date: 20090506
  Serious: Yes (Other)
  Sender: FDA-Public Use
  Company Number: PR-MERCK-0809USA04519

PATIENT
  Age: 13 Year
  Sex: Female

DRUGS (3)
  1. SINGULAIR [Suspect]
     Indication: ASTHMA
     Route: 048
     Dates: start: 20060201, end: 20080701
  2. PAXIL [Concomitant]
     Route: 065
  3. [THERAPY UNSPECIFIED] [Concomitant]
     Route: 065

REACTIONS (4)
  - CRYING [None]
  - HALLUCINATION [None]
  - HOMICIDAL IDEATION [None]
  - OBSESSIVE-COMPULSIVE DISORDER [None]
